FAERS Safety Report 9397857 (Version 2)
Quarter: 2013Q3

REPORT INFORMATION
  Report Type: Spontaneous
  Country: BR (occurrence: BR)
  Receive Date: 20130712
  Receipt Date: 20130723
  Transmission Date: 20140515
  Serious: Yes (Hospitalization)
  Sender: FDA-Public Use
  Company Number: BR-ABBOTT-13X-020-1115875-00

PATIENT
  Age: 66 Year
  Sex: Male
  Weight: 82 kg

DRUGS (4)
  1. DEPAKENE [Suspect]
     Indication: CONVULSION
     Dosage: 6 TABLETS PER DAY, 3000 MG
     Route: 048
     Dates: start: 2009
  2. DEPAKENE [Suspect]
     Indication: CEREBROVASCULAR ACCIDENT
     Dosage: 4 TABLETS PER DAY, 2000 MG, IN THE MORNING AND AT NIGHT
     Route: 048
  3. CAPTOPRIL [Concomitant]
     Indication: HYPERTENSION
     Dosage: 2 TABLETS PER DAY
     Route: 048
  4. WARFARIN [Concomitant]
     Indication: PRODUCT USED FOR UNKNOWN INDICATION
     Route: 048
     Dates: start: 2009

REACTIONS (3)
  - Fall [Recovered/Resolved]
  - Haemorrhage [Recovered/Resolved]
  - Somnolence [Recovered/Resolved]
